FAERS Safety Report 21984166 (Version 3)
Quarter: 2023Q2

REPORT INFORMATION
  Report Type: Spontaneous
  Country: CA (occurrence: CA)
  Receive Date: 20230213
  Receipt Date: 20230519
  Transmission Date: 20230721
  Serious: Yes (Hospitalization, Other)
  Sender: FDA-Public Use
  Company Number: CA-002147023-NVSC2023CA027669

PATIENT
  Age: 53 Year
  Sex: Female

DRUGS (43)
  1. ESTRADIOL [Interacting]
     Active Substance: ESTRADIOL
     Indication: Product used for unknown indication
     Dosage: UNK
     Route: 065
  2. ESTRADIOL [Interacting]
     Active Substance: ESTRADIOL
     Dosage: 50 UG, QD
     Route: 062
  3. LORAZEPAM [Interacting]
     Active Substance: LORAZEPAM
     Indication: Product used for unknown indication
     Dosage: 1 DOSAGE FORM, QD
     Route: 065
  4. LORAZEPAM [Interacting]
     Active Substance: LORAZEPAM
     Dosage: 1 MG, Q24H
     Route: 065
  5. LORAZEPAM [Interacting]
     Active Substance: LORAZEPAM
     Dosage: 1 MG, QD
     Route: 065
  6. SOMATROPIN [Interacting]
     Active Substance: SOMATROPIN
     Indication: Product used for unknown indication
     Dosage: UNK
     Route: 065
  7. ERGOCALCIFEROL [Interacting]
     Active Substance: ERGOCALCIFEROL
     Indication: Product used for unknown indication
     Dosage: 1000.0 IU, QD
     Route: 048
  8. VENLAFAXINE [Interacting]
     Active Substance: VENLAFAXINE HYDROCHLORIDE
     Indication: Product used for unknown indication
     Dosage: 150 MG
     Route: 065
  9. PROGESTERONE [Interacting]
     Active Substance: PROGESTERONE
     Indication: Product used for unknown indication
     Dosage: 100 MG
     Route: 030
  10. PROGESTERONE [Interacting]
     Active Substance: PROGESTERONE
     Dosage: 100 MG
     Route: 065
  11. UBIDECARENONE [Interacting]
     Active Substance: UBIDECARENONE
     Indication: Product used for unknown indication
     Dosage: 3.75 MG
     Route: 065
  12. .ALPHA.-LIPOIC ACID [Interacting]
     Active Substance: .ALPHA.-LIPOIC ACID
     Indication: Product used for unknown indication
     Dosage: 3.75 MG
     Route: 065
  13. LACTOBACILLUS RHAMNOSUS [Interacting]
     Active Substance: LACTOBACILLUS RHAMNOSUS
     Indication: Product used for unknown indication
     Dosage: UNK, TID
     Route: 065
  14. LINOLEIC ACID [Interacting]
     Active Substance: LINOLEIC ACID
     Indication: Product used for unknown indication
     Dosage: 1 DOSAGE FORM, Q8H
     Route: 048
  15. LINOLEIC ACID [Interacting]
     Active Substance: LINOLEIC ACID
     Dosage: UNK
     Route: 048
  16. VARENICLINE TARTRATE [Interacting]
     Active Substance: VARENICLINE TARTRATE
     Indication: Product used for unknown indication
     Dosage: 0.5 MG, QD
     Route: 065
  17. VITAMINS NOS [Interacting]
     Active Substance: VITAMINS
     Indication: Product used for unknown indication
     Dosage: 1 DOSAGE FORM (EVERY 12 HOURS)
     Route: 048
  18. DIMETHYL SULFONE [Interacting]
     Active Substance: DIMETHYL SULFONE
     Indication: Product used for unknown indication
     Dosage: UNK
     Route: 065
  19. DIMETHYL SULFONE [Interacting]
     Active Substance: DIMETHYL SULFONE
     Dosage: 1000.0 MG
     Route: 065
  20. BIFIDOBACTERIUM LONGUM [Interacting]
     Active Substance: BIFIDOBACTERIUM LONGUM
     Indication: Product used for unknown indication
     Dosage: 1 DOSAGE FORM, TID
     Route: 048
  21. DOCONEXENT [Interacting]
     Active Substance: DOCONEXENT
     Indication: Product used for unknown indication
     Dosage: 120 MG, BID (2 EVERY 1 DAYS)
     Route: 048
  22. ICOSAPENT [Interacting]
     Active Substance: ICOSAPENT
     Indication: Product used for unknown indication
     Dosage: 180 MG, BID (2 EVERY 1 DAYS)
     Route: 048
  23. LACTOBACILLUS ACIDOPHILUS [Interacting]
     Active Substance: LACTOBACILLUS ACIDOPHILUS
     Indication: Product used for unknown indication
     Dosage: UNK UNK, TID
     Route: 065
  24. LACTOBACILLUS ACIDOPHILUS [Interacting]
     Active Substance: LACTOBACILLUS ACIDOPHILUS
     Dosage: UNK UNK, TID
     Route: 048
  25. LACTOBACILLUS ACIDOPHILUS [Interacting]
     Active Substance: LACTOBACILLUS ACIDOPHILUS
     Dosage: UNK
     Route: 048
  26. VITAMIN E [Interacting]
     Active Substance: .ALPHA.-TOCOPHEROL
     Indication: Product used for unknown indication
     Dosage: 7.5 MG
     Route: 048
  27. VITAMIN A [Interacting]
     Active Substance: VITAMIN A
     Indication: Product used for unknown indication
     Dosage: 188 UG, BID
     Route: 048
  28. VITAMIN C [Interacting]
     Active Substance: ASCORBIC ACID
     Indication: Product used for unknown indication
     Dosage: 150 MG, BID
     Route: 048
  29. VITAMIN D [Interacting]
     Active Substance: VITAMIN D NOS
     Indication: Product used for unknown indication
     Dosage: 1 DOSAGE FORM, QD
     Route: 048
  30. VITAMIN D [Interacting]
     Active Substance: VITAMIN D NOS
     Dosage: 1000.0 IU, QD
     Route: 048
  31. LINOLEIC ACID, CONJUGATED [Interacting]
     Active Substance: LINOLEIC ACID, CONJUGATED
     Indication: Product used for unknown indication
     Dosage: UNK, TID
     Route: 048
  32. PROMETRIUM [Interacting]
     Active Substance: PROGESTERONE
     Indication: Product used for unknown indication
     Dosage: 100 MG
     Route: 065
  33. BUDESONIDE [Interacting]
     Active Substance: BUDESONIDE
     Indication: Product used for unknown indication
     Dosage: 1 DOSAGE FORM, Q12H
     Route: 065
  34. BUDESONIDE [Interacting]
     Active Substance: BUDESONIDE
     Dosage: 6 UG, BID
     Route: 065
  35. BUDESONIDE [Interacting]
     Active Substance: BUDESONIDE
     Dosage: 200 UG, BID
     Route: 065
  36. BUDESONIDE [Interacting]
     Active Substance: BUDESONIDE
     Dosage: 1 DOSAGE FORM, EVERY 0.5 DAYS
     Route: 065
  37. FORMOTEROL [Interacting]
     Active Substance: FORMOTEROL
     Indication: Product used for unknown indication
     Dosage: 1 DOSAGE FORM, Q12H
     Route: 065
  38. FORMOTEROL FUMARATE [Interacting]
     Active Substance: FORMOTEROL FUMARATE
     Indication: Product used for unknown indication
     Dosage: 6 UG, BID
     Route: 065
  39. FORMOTEROL FUMARATE [Interacting]
     Active Substance: FORMOTEROL FUMARATE
     Dosage: 200 UG, BID
     Route: 065
  40. FORMOTEROL FUMARATE [Interacting]
     Active Substance: FORMOTEROL FUMARATE
     Dosage: 1 DOSAGE FORM, 0.5 DAYS
     Route: 065
  41. FISH OIL [Interacting]
     Active Substance: FISH OIL
     Indication: Product used for unknown indication
     Dosage: 2 DOSAGE FORM, QD
     Route: 048
  42. LACTOBACILLUS CASEI [Interacting]
     Active Substance: LACTOBACILLUS CASEI
     Indication: Product used for unknown indication
     Dosage: 1 DOSAGE FORM, TID
     Route: 065
  43. LACTOBACILLUS CASEI [Interacting]
     Active Substance: LACTOBACILLUS CASEI
     Dosage: UNK UNK, TID
     Route: 065

REACTIONS (2)
  - Hepatotoxicity [Recovered/Resolved]
  - Drug interaction [Unknown]
